FAERS Safety Report 10157655 (Version 3)
Quarter: 2014Q2

REPORT INFORMATION
  Report Type: Spontaneous
  Country: JP (occurrence: JP)
  Receive Date: 20140507
  Receipt Date: 20140528
  Transmission Date: 20141212
  Serious: Yes (Hospitalization)
  Sender: FDA-Public Use
  Company Number: JP-SA-2014SA054760

PATIENT
  Age: 72 Year
  Sex: Male

DRUGS (5)
  1. IRBETAN [Suspect]
     Indication: HYPERTENSION
     Route: 048
     Dates: start: 20130313, end: 20130510
  2. IRTRA [Suspect]
     Indication: HYPERTENSION
     Route: 048
     Dates: start: 20140326, end: 20140408
  3. RABEPRAZOLE SODIUM [Concomitant]
     Indication: GASTROOESOPHAGEAL REFLUX DISEASE
     Route: 048
     Dates: start: 20110118
  4. PREMINENT [Concomitant]
     Indication: HYPERTENSION
     Route: 048
     Dates: start: 20121106, end: 20130312
  5. AZILVA [Concomitant]
     Indication: HYPERTENSION
     Dates: start: 20140226, end: 20140325

REACTIONS (1)
  - Alveolitis allergic [Recovering/Resolving]
